FAERS Safety Report 10891336 (Version 1)
Quarter: 2015Q1

REPORT INFORMATION
  Report Type: Spontaneous
  Country: BR (occurrence: BR)
  Receive Date: 20150306
  Receipt Date: 20150306
  Transmission Date: 20150721
  Serious: Yes (Hospitalization, Other)
  Sender: FDA-Public Use
  Company Number: BR-009507513-1502BRA012016

PATIENT
  Sex: Female
  Weight: 62 kg

DRUGS (1)
  1. MERCILON [Suspect]
     Active Substance: DESOGESTREL\ETHINYL ESTRADIOL
     Indication: CONTRACEPTION
     Dosage: 1 DF ONCE DAILY(QD)
     Route: 048
     Dates: start: 2003, end: 200902

REACTIONS (3)
  - Therapeutic response unexpected [Unknown]
  - Maternal exposure before pregnancy [Unknown]
  - Premature separation of placenta [Unknown]

NARRATIVE: CASE EVENT DATE: 2003
